FAERS Safety Report 8401282-1 (Version None)
Quarter: 2012Q2

REPORT INFORMATION
  Report Type: 
  Country: None (occurrence: None)
  Receive Date: 20120530
  Receipt Date: 20120530
  Transmission Date: 20120825
  Serious: Yes (Hospitalization, Disabling)
  Sender: FDA-Public Use
  Company Number: None

PATIENT
  Age: 69 Year
  Sex: Male
  Weight: 70.3075 kg

DRUGS (2)
  1. CIPRO [Suspect]
     Indication: PROPHYLAXIS
     Dosage: 500 MG TWICE DAILY PO
     Route: 048
     Dates: start: 20090520, end: 20090530
  2. CIPRO [Suspect]
     Indication: BIOPSY PROSTATE
     Dosage: 500 MG TWICE DAILY PO
     Route: 048
     Dates: start: 20090520, end: 20090530

REACTIONS (4)
  - DECREASED ACTIVITY [None]
  - ROTATOR CUFF SYNDROME [None]
  - PAIN [None]
  - MOBILITY DECREASED [None]
